FAERS Safety Report 5061348-3 (Version None)
Quarter: 2006Q3

REPORT INFORMATION
  Report Type: 
  Country: None (occurrence: None)
  Receive Date: 20060725
  Receipt Date: 20060626
  Transmission Date: 20061208
  Serious: Yes (Hospitalization)
  Sender: FDA-Public Use
  Company Number: FR-NOVOPROD-254596

PATIENT
  Age: 53 Year
  Sex: Male
  Weight: 134 kg

DRUGS (1)
  1. GLUCAGEN [Suspect]
     Indication: GLUCAGON TOLERANCE TEST
     Dosage: 1 MG, UNK
     Route: 042
     Dates: start: 20060620, end: 20060620

REACTIONS (3)
  - NAUSEA [None]
  - PALPITATIONS [None]
  - PHARMACEUTICAL PRODUCT COMPLAINT [None]
